FAERS Safety Report 14819938 (Version 1)
Quarter: 2018Q2

REPORT INFORMATION
  Report Type: Report from Study
  Country: ES (occurrence: ES)
  Receive Date: 20180427
  Receipt Date: 20180427
  Transmission Date: 20180711
  Serious: Yes (Other)
  Sender: FDA-Public Use
  Company Number: ES-PFIZER INC-2018166594

PATIENT
  Age: 89 Year
  Sex: Male

DRUGS (2)
  1. TRANKIMAZIN [Suspect]
     Active Substance: ALPRAZOLAM
     Indication: DEPRESSION
     Dosage: 1 MG, 1X/DAY
     Route: 048
     Dates: start: 20030801, end: 20171114
  2. TRANKIMAZIN [Suspect]
     Active Substance: ALPRAZOLAM
     Indication: DEPRESSION
     Dosage: 0.5 MG, 2X/DAY (1-0-1)
     Route: 048
     Dates: start: 20141029

REACTIONS (1)
  - Depressed level of consciousness [Recovering/Resolving]

NARRATIVE: CASE EVENT DATE: 201711
